FAERS Safety Report 14007453 (Version 1)
Quarter: 2017Q3

REPORT INFORMATION
  Report Type: Spontaneous
  Country: FI (occurrence: FI)
  Receive Date: 20170925
  Receipt Date: 20170925
  Transmission Date: 20171128
  Serious: Yes (Other)
  Sender: FDA-Public Use
  Company Number: FI-SHIRE-FI201723191

PATIENT

DRUGS (5)
  1. MIRTAZAPIN ACTAVIS [Concomitant]
     Active Substance: MIRTAZAPINE
     Indication: SLEEP DISORDER
  2. XANOR XR [Concomitant]
     Active Substance: ALPRAZOLAM
     Indication: ANXIETY
  3. PERATSIN [Concomitant]
     Active Substance: PERPHENAZINE
     Indication: PHOBIA
  4. ELVANSE [Suspect]
     Active Substance: LISDEXAMFETAMINE DIMESYLATE
     Indication: ATTENTION DEFICIT/HYPERACTIVITY DISORDER
     Dosage: 70 MG, UNK
     Route: 048
     Dates: start: 20170809, end: 20170901
  5. ATARAX [Concomitant]
     Active Substance: HYDROXYZINE HYDROCHLORIDE
     Indication: HYPERSENSITIVITY

REACTIONS (14)
  - Suspiciousness [Recovered/Resolved]
  - Balance disorder [Recovered/Resolved]
  - Memory impairment [Recovered/Resolved]
  - Aggression [Recovered/Resolved]
  - Muscle tightness [Recovered/Resolved]
  - Chest discomfort [Recovered/Resolved]
  - Pruritus [Recovered/Resolved]
  - Arrhythmia [Recovered/Resolved]
  - Abdominal pain [Recovered/Resolved]
  - Visual impairment [Recovered/Resolved]
  - Hyperacusis [Recovered/Resolved]
  - Disturbance in attention [Recovered/Resolved]
  - Headache [Recovered/Resolved]
  - Nervousness [Recovered/Resolved]

NARRATIVE: CASE EVENT DATE: 20170809
